FAERS Safety Report 12719774 (Version 2)
Quarter: 2016Q4

REPORT INFORMATION
  Report Type: Spontaneous
  Country: US (occurrence: US)
  Receive Date: 20160907
  Receipt Date: 20161031
  Transmission Date: 20170207
  Serious: No
  Sender: FDA-Public Use
  Company Number: US-JNJFOC-20160813179

PATIENT
  Sex: Female

DRUGS (2)
  1. SIMPONI [Suspect]
     Active Substance: GOLIMUMAB
     Indication: RHEUMATOID ARTHRITIS
     Route: 058
  2. METHOTREXATE. [Suspect]
     Active Substance: METHOTREXATE
     Indication: RHEUMATOID ARTHRITIS
     Route: 065

REACTIONS (7)
  - Accidental exposure to product [Unknown]
  - Drug dose omission [Unknown]
  - Product use issue [Unknown]
  - Liver disorder [Unknown]
  - Off label use [Unknown]
  - Device malfunction [Unknown]
  - Malaise [Unknown]

NARRATIVE: CASE EVENT DATE: 201608
